FAERS Safety Report 4378047-3 (Version None)
Quarter: 2004Q2

REPORT INFORMATION
  Report Type: 
  Country: None (occurrence: None)
  Receive Date: 20040609
  Receipt Date: 20020221
  Transmission Date: 20050107
  Serious: Yes (Hospitalization)
  Sender: FDA-Public Use
  Company Number: 2002SE01591

PATIENT
  Sex: Male

DRUGS (3)
  1. SELOZOK [Suspect]
     Indication: HYPERTENSION
     Dosage: 50 MG DAILY PO
     Route: 048
  2. PROGRAF [Concomitant]
  3. CELLCEPT [Concomitant]

REACTIONS (1)
  - RETINAL DETACHMENT [None]
